FAERS Safety Report 20037707 (Version 2)
Quarter: 2021Q4

REPORT INFORMATION
  Report Type: Spontaneous
  Country: IN (occurrence: IN)
  Receive Date: 20211105
  Receipt Date: 20211126
  Transmission Date: 20220303
  Serious: Yes (Hospitalization)
  Sender: FDA-Public Use
  Company Number: IN-TORRENT-00002946

PATIENT
  Age: 26 Year
  Sex: Female

DRUGS (14)
  1. ESOMEPRAZOLE [Suspect]
     Active Substance: ESOMEPRAZOLE
     Indication: Product used for unknown indication
     Dosage: BD, 7 AM AND 7 PM
     Route: 042
     Dates: start: 202110, end: 202110
  2. Contramol [Concomitant]
     Indication: Product used for unknown indication
     Dosage: TDS
     Route: 042
  3. Duride [Concomitant]
     Indication: Product used for unknown indication
     Dosage: TDS (7 AM, 3 PM AND 8 PM)
     Dates: start: 202110
  4. ONDANSETRON HYDROCHLORIDE [Concomitant]
     Active Substance: ONDANSETRON HYDROCHLORIDE
     Indication: Product used for unknown indication
     Dosage: UNKNOWN
     Dates: start: 202110
  5. FLUDAC [Concomitant]
     Indication: Product used for unknown indication
     Dosage: BD
  6. Maxin [Concomitant]
     Indication: Product used for unknown indication
     Dosage: TDS
  7. Mesacol [Concomitant]
     Indication: Product used for unknown indication
     Dosage: 1.2 GM OD
  8. Vibra [Concomitant]
     Indication: Product used for unknown indication
     Dosage: BDX3D
  9. monocef [Concomitant]
     Indication: Product used for unknown indication
     Dosage: BD
     Route: 042
  10. LESURIDE [Concomitant]
     Indication: Product used for unknown indication
     Dosage: TDS
     Route: 042
  11. NORMAXIN [Concomitant]
     Active Substance: CHLORDIAZEPOXIDE\CLIDINIUM BROMIDE\DICYCLOMINE HYDROCHLORIDE
     Indication: Product used for unknown indication
     Dosage: TDS (1-1-1)
     Route: 065
  12. TINIBA [Concomitant]
     Indication: Product used for unknown indication
     Dosage: 1-0-1
     Route: 065
  13. pc enema [Concomitant]
     Indication: Product used for unknown indication
     Dosage: UNKNOWN
     Route: 065
  14. ZIFI [Concomitant]
     Indication: Product used for unknown indication
     Dosage: 1-0-1 FOR 3 DAYS
     Route: 065

REACTIONS (2)
  - Hypoglycaemia [Recovering/Resolving]
  - Asthenia [Recovering/Resolving]

NARRATIVE: CASE EVENT DATE: 20211022
